FAERS Safety Report 4730905-3 (Version None)
Quarter: 2005Q3

REPORT INFORMATION
  Report Type: 
  Country: None (occurrence: None)
  Receive Date: 20050719
  Receipt Date: 20050413
  Transmission Date: 20060218
  Serious: Yes (Other)
  Sender: FDA-Public Use
  Company Number: 2005BI007682

PATIENT
  Age: 30 Year
  Sex: Female
  Weight: 71.2147 kg

DRUGS (2)
  1. AVONEX [Suspect]
     Indication: MULTIPLE SCLEROSIS
     Dosage: 30 UG; QW; IM
     Route: 030
     Dates: start: 20000101, end: 20030101
  2. AVONEX [Suspect]
     Indication: MULTIPLE SCLEROSIS
     Dosage: 30 UG; QW; IM
     Route: 030
     Dates: start: 20030101

REACTIONS (9)
  - BLADDER SPASM [None]
  - BLINDNESS [None]
  - COLITIS ULCERATIVE [None]
  - DEPRESSION [None]
  - GRAND MAL CONVULSION [None]
  - SEASONAL ALLERGY [None]
  - TREMOR [None]
  - URINARY INCONTINENCE [None]
  - WEIGHT DECREASED [None]
